FAERS Safety Report 7413012-0 (Version None)
Quarter: 2011Q2

REPORT INFORMATION
  Report Type: 
  Country: None (occurrence: None)
  Receive Date: 20110408
  Receipt Date: 20110408
  Transmission Date: 20111010
  Serious: No
  Sender: FDA-Public Use
  Company Number: None

PATIENT
  Age: 17 Year
  Weight: 68.4932 kg

DRUGS (1)
  1. MINOCYCLINE HCL [Suspect]
     Indication: ACNE
     Dosage: 2 TYPES A DAY PO
     Route: 048
     Dates: start: 20110323, end: 20110407

REACTIONS (2)
  - BACK PAIN [None]
  - NAUSEA [None]
